FAERS Safety Report 13932392 (Version 1)
Quarter: 2017Q3

REPORT INFORMATION
  Report Type: Spontaneous
  Country: DE (occurrence: DE)
  Receive Date: 20170904
  Receipt Date: 20170904
  Transmission Date: 20171127
  Serious: Yes (Other)
  Sender: FDA-Public Use
  Company Number: DE-TORRENT-00007026

PATIENT
  Age: 35 Year
  Sex: Female
  Weight: 83 kg

DRUGS (5)
  1. GRIPPEIMPFSTOFF [Concomitant]
     Active Substance: INFLUENZA VIRUS VACCINE
  2. FOLSAURE [Concomitant]
     Active Substance: FOLIC ACID
  3. QUETIAPINE. [Suspect]
     Active Substance: QUETIAPINE
  4. AKINETON [Concomitant]
     Active Substance: BIPERIDEN HYDROCHLORIDE
  5. ARIPIPRAZOL [Suspect]
     Active Substance: ARIPIPRAZOLE

REACTIONS (2)
  - Gestational diabetes [Recovered/Resolved]
  - Exposure during pregnancy [Unknown]
